FAERS Safety Report 9659581 (Version 1)
Quarter: 2013Q4

REPORT INFORMATION
  Report Type: Spontaneous
  Country: US (occurrence: US)
  Receive Date: 20131031
  Receipt Date: 20131031
  Transmission Date: 20140711
  Serious: Yes (Hospitalization)
  Sender: FDA-Public Use
  Company Number: US-SA-2013SA110679

PATIENT
  Age: 60 Year
  Sex: Male

DRUGS (1)
  1. LANTUS [Suspect]
     Indication: DIABETES MELLITUS
     Dosage: DOSE:50 UNIT(S)
     Route: 058

REACTIONS (3)
  - Colon cancer [Not Recovered/Not Resolved]
  - Malaise [Not Recovered/Not Resolved]
  - Impaired healing [Not Recovered/Not Resolved]
